FAERS Safety Report 9014465 (Version 1)
Quarter: 2013Q1

REPORT INFORMATION
  Report Type: Report from Study
  Country: US (occurrence: US)
  Receive Date: 20130115
  Receipt Date: 20130115
  Transmission Date: 20140127
  Serious: Yes (Death, Hospitalization)
  Sender: FDA-Public Use
  Company Number: US-GLAXOSMITHKLINE-A1008267A

PATIENT
  Age: 40 Year
  Sex: Female
  Weight: 109.8 kg

DRUGS (1)
  1. PAZOPANIB [Suspect]
     Indication: NEOPLASM
     Dosage: 800MG PER DAY
     Route: 048
     Dates: start: 20120807, end: 20120816

REACTIONS (7)
  - Embolism [Recovered/Resolved]
  - Hyperglycaemia [Recovered/Resolved]
  - Hyperkalaemia [Recovered/Resolved]
  - Hypothyroidism [Recovered/Resolved]
  - Renal failure acute [Recovered/Resolved]
  - Large intestinal obstruction [Recovered/Resolved]
  - Multi-organ failure [Fatal]
